FAERS Safety Report 16979884 (Version 1)
Quarter: 2019Q4

REPORT INFORMATION
  Report Type: Spontaneous
  Country: US (occurrence: US)
  Receive Date: 20191031
  Receipt Date: 20191031
  Transmission Date: 20200122
  Serious: No
  Sender: FDA-Public Use
  Company Number: PHEH2019US038337

PATIENT
  Sex: Female

DRUGS (1)
  1. PILOCARPINE HYDROCHLORIDE. [Suspect]
     Active Substance: PILOCARPINE HYDROCHLORIDE
     Indication: PRODUCT USED FOR UNKNOWN INDICATION
     Dosage: 2 %, BID
     Route: 065
     Dates: start: 20190812

REACTIONS (3)
  - Headache [Unknown]
  - Vision blurred [Unknown]
  - Feeling abnormal [Unknown]
